FAERS Safety Report 4378005-9 (Version None)
Quarter: 2004Q2

REPORT INFORMATION
  Report Type: 
  Country: None (occurrence: None)
  Receive Date: 20040609
  Receipt Date: 20040601
  Transmission Date: 20050107
  Serious: Yes (Other)
  Sender: FDA-Public Use
  Company Number: UKP04000136

PATIENT
  Age: 69 Year
  Sex: Female

DRUGS (3)
  1. ACTONEL [Suspect]
     Indication: OSTEOPOROSIS
     Dosage: 35 MG, 1/WEEK, ORAL
     Route: 048
     Dates: start: 20030715, end: 20040406
  2. AMITRIPTYLINE HCL [Concomitant]
  3. DRUGS NOS [Concomitant]

REACTIONS (7)
  - BONE PAIN [None]
  - DIFFICULTY IN WALKING [None]
  - GASTRIC DISORDER [None]
  - MUSCLE DISORDER [None]
  - MUSCULAR WEAKNESS [None]
  - MUSCULOSKELETAL STIFFNESS [None]
  - SWELLING [None]
